FAERS Safety Report 23180348 (Version 1)
Quarter: 2023Q4

REPORT INFORMATION
  Report Type: Spontaneous
  Country: US (occurrence: US)
  Receive Date: 20231114
  Receipt Date: 20231114
  Transmission Date: 20240109
  Serious: Yes (Death, Hospitalization, Other)
  Sender: FDA-Public Use
  Company Number: US-AMGEN-USASP2023199471

PATIENT

DRUGS (1)
  1. IVABRADINE [Suspect]
     Active Substance: IVABRADINE
     Indication: Cardiac failure acute
     Dosage: UNK
     Route: 065

REACTIONS (5)
  - Death [Fatal]
  - Cardiac failure acute [Unknown]
  - Anaemia [Unknown]
  - Arrhythmia [Unknown]
  - Hypotension [Unknown]
